FAERS Safety Report 4301308-0 (Version None)
Quarter: 2004Q1

REPORT INFORMATION
  Report Type: 
  Country: None (occurrence: None)
  Receive Date: 20040219
  Receipt Date: 20040206
  Transmission Date: 20041129
  Serious: Yes (Hospitalization)
  Sender: FDA-Public Use
  Company Number: 2003-111148-NL

PATIENT
  Age: 69 Year
  Sex: Male

DRUGS (8)
  1. MIRTAZAPINE [Suspect]
     Indication: DEPRESSION
     Dosage: SEE IMAGE
     Route: 048
     Dates: start: 20030701, end: 20030801
  2. MIRTAZAPINE [Suspect]
     Indication: DEPRESSION
     Dosage: SEE IMAGE
     Route: 048
     Dates: start: 20030801, end: 20031101
  3. MIRTAZAPINE [Suspect]
     Indication: DEPRESSION
     Dosage: SEE IMAGE
     Route: 048
     Dates: start: 20031101, end: 20031215
  4. SIMVASTATIN [Suspect]
     Indication: LIPID METABOLISM DISORDER
     Dosage: 40 MG, ORAL
     Route: 048
     Dates: start: 20020801
  5. SERTRALINE HCL [Concomitant]
  6. ACETYLSALICYLIC ACID [Concomitant]
  7. PIPAMPERONE [Concomitant]
  8. LISINOPRIL [Concomitant]

REACTIONS (4)
  - BACK PAIN [None]
  - BLOOD CREATINE PHOSPHOKINASE INCREASED [None]
  - DRUG INTERACTION [None]
  - MYOPATHY [None]
